FAERS Safety Report 12980999 (Version 4)
Quarter: 2017Q1

REPORT INFORMATION
  Report Type: Report from Study
  Country: JP (occurrence: JP)
  Receive Date: 20161128
  Receipt Date: 20170331
  Transmission Date: 20170428
  Serious: Yes (Hospitalization)
  Sender: FDA-Public Use
  Company Number: JP-B.I. PHARMACEUTICALS,INC./RIDGEFIELD-2016-NB-001054

PATIENT
  Age: 84 Year
  Sex: Female
  Weight: 43.3 kg

DRUGS (16)
  1. CEFCAPENE PIVOXIL HYDROCHLORIDE HYDRATE [Concomitant]
     Active Substance: CEFCAPENE PIVOXIL HYDROCHLORIDE HYDRATE
     Indication: PRODUCT USED FOR UNKNOWN INDICATION
     Route: 065
     Dates: start: 20161125, end: 20161126
  2. PRIMPERAN [Concomitant]
     Active Substance: METOCLOPRAMIDE HYDROCHLORIDE
     Indication: PRODUCT USED FOR UNKNOWN INDICATION
     Route: 065
     Dates: start: 20161125, end: 20161125
  3. MORPHINE HYDROCHLORIDE HYDRATE [Concomitant]
     Active Substance: MORPHINE HYDROCHLORIDE
     Indication: PRODUCT USED FOR UNKNOWN INDICATION
     Route: 065
     Dates: start: 20161125, end: 20161125
  4. DIPRIVAN [Concomitant]
     Active Substance: PROPOFOL
     Indication: PRODUCT USED FOR UNKNOWN INDICATION
     Route: 065
     Dates: start: 20161125, end: 20161125
  5. HEPARIN SODIUM. [Suspect]
     Active Substance: HEPARIN SODIUM
     Indication: THROMBOSIS PROPHYLAXIS
     Dosage: DOSE: 7350 UNITS
     Route: 042
     Dates: start: 20161125, end: 20161125
  6. NEXIUM [Concomitant]
     Active Substance: ESOMEPRAZOLE MAGNESIUM
     Indication: PRODUCT USED FOR UNKNOWN INDICATION
     Route: 065
     Dates: start: 20161125, end: 20161204
  7. SUNRYTHM [Concomitant]
     Active Substance: PILSICAINIDE HYDROCHLORIDE
     Indication: ATRIAL FIBRILLATION
     Route: 048
  8. ATP [Concomitant]
     Active Substance: ADENOSINE TRIPHOSPHATE DISODIUM
     Indication: PRODUCT USED FOR UNKNOWN INDICATION
     Route: 065
     Dates: start: 20161125, end: 20161125
  9. HEPARIN CALCIUM [Concomitant]
     Active Substance: HEPARIN CALCIUM
     Indication: PRODUCT USED FOR UNKNOWN INDICATION
     Route: 065
     Dates: start: 20161125, end: 20161125
  10. SUCRALFATE HYDRATE [Concomitant]
     Indication: PRODUCT USED FOR UNKNOWN INDICATION
     Route: 065
     Dates: start: 20161125, end: 20161204
  11. PRAZAXA [Suspect]
     Active Substance: DABIGATRAN ETEXILATE MESYLATE
     Indication: ATRIAL FIBRILLATION
     Route: 048
     Dates: end: 20161124
  12. ATROPINE SULFATE HYDRATE [Concomitant]
     Active Substance: ATROPINE SULFATE
     Indication: PRODUCT USED FOR UNKNOWN INDICATION
     Route: 065
     Dates: start: 20161125, end: 20161125
  13. PROTERNOL [Concomitant]
     Active Substance: ISOPROTERENOL
     Indication: PRODUCT USED FOR UNKNOWN INDICATION
     Route: 065
     Dates: start: 20161125, end: 20161125
  14. MAINTATE [Concomitant]
     Active Substance: BISOPROLOL FUMARATE
     Indication: ATRIAL FIBRILLATION
     Route: 048
  15. INOVAN [Concomitant]
     Active Substance: DOPAMINE HYDROCHLORIDE
     Indication: PRODUCT USED FOR UNKNOWN INDICATION
     Route: 065
     Dates: start: 20161125, end: 20161126
  16. PROTAMINE SULFATE. [Concomitant]
     Active Substance: PROTAMINE SULFATE
     Indication: PRODUCT USED FOR UNKNOWN INDICATION
     Route: 065
     Dates: start: 20161125, end: 20161125

REACTIONS (1)
  - Cardiac tamponade [Recovered/Resolved]

NARRATIVE: CASE EVENT DATE: 20161125
